FAERS Safety Report 7311764-1 (Version None)
Quarter: 2011Q1

REPORT INFORMATION
  Report Type: 
  Country: None (occurrence: None)
  Receive Date: 20110224
  Receipt Date: 20110217
  Transmission Date: 20110831
  Serious: Yes (Other)
  Sender: FDA-Public Use
  Company Number: US-BAYER-2011-016368

PATIENT
  Sex: Female

DRUGS (2)
  1. YAZ [Suspect]
     Dosage: SINCE FEB-2011
     Dates: start: 20110201
  2. YAZ [Suspect]
     Indication: MENSTRUAL CYCLE MANAGEMENT
     Dosage: FOR YEARS
     Dates: end: 20110101

REACTIONS (3)
  - DYSMENORRHOEA [None]
  - MENSTRUATION DELAYED [None]
  - THYROID CANCER [None]
